FAERS Safety Report 10965334 (Version 2)
Quarter: 2015Q2

REPORT INFORMATION
  Report Type: Spontaneous
  Country: US (occurrence: US)
  Receive Date: 20150330
  Receipt Date: 20150624
  Transmission Date: 20150821
  Serious: No
  Sender: FDA-Public Use
  Company Number: US-PFIZER INC-2015110361

PATIENT
  Sex: Female

DRUGS (2)
  1. LYRICA [Suspect]
     Active Substance: PREGABALIN
     Dosage: 150MG AT DAY, 100MG IN AFTERNOON AND 100 AT NIGHT
  2. LYRICA [Suspect]
     Active Substance: PREGABALIN
     Indication: FIBROMYALGIA
     Dosage: 150MG AT DAY AND 100MG AT NIGHT

REACTIONS (9)
  - Weight increased [Unknown]
  - Skin sensitisation [Unknown]
  - Body temperature fluctuation [Unknown]
  - Feeling abnormal [Unknown]
  - Influenza like illness [Not Recovered/Not Resolved]
  - Hyperhidrosis [Not Recovered/Not Resolved]
  - Poor quality sleep [Unknown]
  - Vision blurred [Unknown]
  - Burning sensation [Unknown]

NARRATIVE: CASE EVENT DATE: 20150615
